FAERS Safety Report 9139196 (Version 3)
Quarter: 2013Q2

REPORT INFORMATION
  Report Type: Report from Study
  Country: IT (occurrence: IT)
  Receive Date: 20130305
  Receipt Date: 20130404
  Transmission Date: 20140414
  Serious: Yes (Death, Hospitalization, Other)
  Sender: FDA-Public Use
  Company Number: IT-PFIZER INC-2013074067

PATIENT
  Age: 48 Year
  Sex: Female
  Weight: 40 kg

DRUGS (8)
  1. CRIZOTINIB [Suspect]
     Indication: NON-SMALL CELL LUNG CANCER STAGE IV
     Dosage: 250 MG, 2X/DAY
     Route: 048
     Dates: start: 20130213, end: 20130218
  2. CRIZOTINIB [Suspect]
     Dosage: 200 MG, 2X/DAY
     Route: 048
     Dates: start: 20130308, end: 20130310
  3. NEURONTIN [Concomitant]
     Indication: PAIN
     Dosage: 100 MG, 3X/DAY
     Route: 048
     Dates: start: 20130129
  4. DUROGESIC [Concomitant]
     Indication: PAIN
     Dosage: 100 MG, EVERY 3 DAYS
     Route: 065
  5. ESOPRAL [Concomitant]
     Indication: GASTRITIS
     Dosage: 40 MG, 1X/DAY
     Route: 042
     Dates: start: 20130108
  6. KEPPRA [Concomitant]
     Indication: CONVULSION PROPHYLAXIS
     Dosage: 500 MG, 2X/WEEK
     Route: 048
     Dates: start: 20130117
  7. SOLDESAM [Concomitant]
     Indication: BRAIN OEDEMA
     Dosage: 8 MG, 1X/DAY
     Route: 042
     Dates: start: 20130108
  8. PERFALGAN [Concomitant]
     Indication: PAIN
     Dosage: 1000 MG, 2X/DAY
     Route: 042
     Dates: start: 20130108

REACTIONS (7)
  - Neutropenia [Recovered/Resolved]
  - White blood cell count decreased [Unknown]
  - Disease progression [Fatal]
  - Non-small cell lung cancer stage IV [Fatal]
  - Oral candidiasis [Not Recovered/Not Resolved]
  - Dysphagia [Not Recovered/Not Resolved]
  - Oesophageal candidiasis [Not Recovered/Not Resolved]
